FAERS Safety Report 17561858 (Version 1)
Quarter: 2020Q1

REPORT INFORMATION
  Report Type: Spontaneous
  Country: CZ (occurrence: CZ)
  Receive Date: 20200319
  Receipt Date: 20200319
  Transmission Date: 20200409
  Serious: Yes (Disabling, Other)
  Sender: FDA-Public Use
  Company Number: CZ-TEVA-2020-CZ-1204193

PATIENT
  Age: 52 Year
  Sex: Female
  Weight: 114 kg

DRUGS (2)
  1. MUCONASAL PLUS [Suspect]
     Active Substance: TRAMAZOLINE HYDROCHLORIDE
     Indication: RHINORRHOEA
     Dosage: 1.18 MG, 2-3 TIMES DAILY 1 INJECTION INTO EACH NOSTRIL
     Route: 045
     Dates: start: 20170422, end: 20170428
  2. DOXYBENE [Suspect]
     Active Substance: DOXYCYCLINE
     Indication: TRACHEITIS
     Dosage: 100 MG
     Route: 048
     Dates: start: 20170422, end: 20170427

REACTIONS (2)
  - Anosmia [Not Recovered/Not Resolved]
  - Ageusia [Unknown]

NARRATIVE: CASE EVENT DATE: 201704
